FAERS Safety Report 8908452 (Version 1)
Quarter: 2012Q4

REPORT INFORMATION
  Report Type: 
  Country: DK (occurrence: DK)
  Receive Date: 20121114
  Receipt Date: 20121114
  Transmission Date: 20130627
  Serious: Yes (Other)
  Sender: FDA-Public Use
  Company Number: DK-COVIDIEN/TYCO HEALTHCARE/MALLINCKRODT-T201203887

PATIENT
  Age: 42 Year
  Sex: Female

DRUGS (10)
  1. MORPHINE [Suspect]
     Indication: ANALGESIC THERAPY
     Dosage: 2 mg, intraoperative
     Route: 008
  2. MORPHINE [Suspect]
     Dosage: 10 mg before operation
     Route: 042
  3. MORPHINE [Suspect]
     Dosage: UNK
     Route: 042
  4. LIDOCAINE HYDROCHLORIDE/EPINEPHRINE [Suspect]
     Indication: EPIDURAL TEST DOSE
     Dosage: Unk, 20mg/ml
     Route: 008
  5. DISODIUM EDETATE [Suspect]
     Indication: EPIDURAL TEST DOSE
     Dosage: Unk, 5 mcg/ml
     Route: 008
  6. ROPIVACAINE [Suspect]
     Indication: ANALGESIC THERAPY
     Dosage: 13 ml of 5mg/ml
     Route: 008
  7. BUPIVACAINE [Suspect]
     Indication: EPIDURAL ANALGESIA
     Dosage: Unk, 1 mg/ml
  8. FENTANYL [Suspect]
     Indication: EPIDURAL ANALGESIA
     Dosage: Unk, 2 mcg/ml
  9. ADRENALINE [Suspect]
     Indication: POSTOPERATIVE ANALGESIA
     Dosage: Unk, 2 mcg/ml without preservatives
     Route: 008
  10. OXYCODONE [Concomitant]
     Indication: ABDOMINAL PAIN
     Dosage: 40 mg bid

REACTIONS (3)
  - Hyperaesthesia [Recovering/Resolving]
  - Erythema [None]
  - Pruritus [None]
